FAERS Safety Report 25034810 (Version 1)
Quarter: 2025Q1

REPORT INFORMATION
  Report Type: Report from Study
  Country: US (occurrence: US)
  Receive Date: 20250304
  Receipt Date: 20250304
  Transmission Date: 20250409
  Serious: Yes (Hospitalization)
  Sender: ABBVIE
  Company Number: US-ABBVIE-6151339

PATIENT
  Age: 45 Year
  Sex: Female

DRUGS (2)
  1. RINVOQ [Suspect]
     Active Substance: UPADACITINIB
     Indication: Rheumatoid arthritis
     Route: 048
     Dates: start: 202409, end: 20250203
  2. RINVOQ [Suspect]
     Active Substance: UPADACITINIB
     Indication: Rheumatoid arthritis
     Route: 048
     Dates: start: 20250213

REACTIONS (5)
  - Decreased appetite [Recovering/Resolving]
  - Rheumatoid arthritis [Unknown]
  - Nausea [Recovering/Resolving]
  - Mobility decreased [Recovering/Resolving]
  - Synovial cyst [Unknown]

NARRATIVE: CASE EVENT DATE: 20250203
